FAERS Safety Report 18234324 (Version 1)
Quarter: 2020Q3

REPORT INFORMATION
  Report Type: Spontaneous
  Country: US (occurrence: US)
  Receive Date: 20200904
  Receipt Date: 20200904
  Transmission Date: 20201103
  Serious: Yes (Other)
  Sender: FDA-Public Use
  Company Number: US-009507513-2009USA000600

PATIENT
  Age: 28 Year
  Sex: Female
  Weight: 107.03 kg

DRUGS (1)
  1. NEXPLANON [Suspect]
     Active Substance: ETONOGESTREL
     Indication: CONTRACEPTION
     Dosage: 1 ROD, ONCE IN ARM
     Route: 059
     Dates: start: 201912

REACTIONS (9)
  - Overweight [Unknown]
  - Fat tissue increased [Unknown]
  - Hypoaesthesia [Unknown]
  - Complication associated with device [Not Recovered/Not Resolved]
  - Paraesthesia [Unknown]
  - Device dislocation [Not Recovered/Not Resolved]
  - Device issue [Not Recovered/Not Resolved]
  - Adverse event [Unknown]
  - Complication of device removal [Not Recovered/Not Resolved]

NARRATIVE: CASE EVENT DATE: 2020
